FAERS Safety Report 4625377-3 (Version None)
Quarter: 2005Q2

REPORT INFORMATION
  Report Type: 
  Country: None (occurrence: None)
  Receive Date: 20050325
  Receipt Date: 20050127
  Transmission Date: 20051028
  Serious: No
  Sender: FDA-Public Use
  Company Number: USA050189340

PATIENT
  Age: 71 Year
  Sex: Female

DRUGS (4)
  1. FORTEO [Suspect]
     Indication: BONE DENSITY DECREASED
  2. OXYGEN [Concomitant]
  3. ACTONEL [Concomitant]
  4. ACETAMINOPHEN AND OXYCODONE HCL [Concomitant]

REACTIONS (2)
  - BONE PAIN [None]
  - PAIN IN EXTREMITY [None]
